FAERS Safety Report 20793819 (Version 2)
Quarter: 2022Q2

REPORT INFORMATION
  Report Type: Spontaneous
  Country: NL (occurrence: NL)
  Receive Date: 20220506
  Receipt Date: 20220614
  Transmission Date: 20220720
  Serious: Yes (Other)
  Sender: FDA-Public Use
  Company Number: ALC2022NL002027

PATIENT

DRUGS (4)
  1. ATROPINE [Suspect]
     Active Substance: ATROPINE
     Indication: Product used for unknown indication
     Dosage: UNK
     Route: 065
  2. PRIMOVIST [Suspect]
     Active Substance: GADOXETATE DISODIUM
     Indication: Magnetic resonance imaging
     Dosage: UNK UNK, QD
     Route: 042
     Dates: start: 20220221, end: 20220221
  3. PROHANCE [Concomitant]
     Active Substance: GADOTERIDOL
     Indication: Liver disorder
     Dosage: UNK, QD
     Route: 065
     Dates: start: 20220221, end: 20220221
  4. PROHANCE [Concomitant]
     Active Substance: GADOTERIDOL
     Indication: Magnetic resonance imaging

REACTIONS (3)
  - Chorioretinitis [Recovered/Resolved]
  - Serpiginous choroiditis [Recovered/Resolved]
  - Maculopathy [Unknown]

NARRATIVE: CASE EVENT DATE: 20220301
